FAERS Safety Report 5217568-8 (Version None)
Quarter: 2007Q1

REPORT INFORMATION
  Report Type: 
  Country: None (occurrence: None)
  Receive Date: 20070124
  Receipt Date: 20060404
  Transmission Date: 20070707
  Serious: No
  Sender: FDA-Public Use
  Company Number: US-GLAXOSMITHKLINE-A0600318A

PATIENT
  Age: 50 Year
  Sex: Female

DRUGS (3)
  1. PAXIL CR [Suspect]
     Dosage: 25MG TWICE PER DAY
     Route: 048
  2. COMBIVENT [Concomitant]
  3. ADVAIR DISKUS 100/50 [Concomitant]

REACTIONS (4)
  - DIARRHOEA [None]
  - FEELING ABNORMAL [None]
  - STOMACH DISCOMFORT [None]
  - VOMITING [None]
